FAERS Safety Report 9524066 (Version 1)
Quarter: 2013Q3

REPORT INFORMATION
  Report Type: Spontaneous
  Country: JP (occurrence: None)
  Receive Date: 20130912
  Receipt Date: 20130912
  Transmission Date: 20140515
  Serious: Yes (Hospitalization)
  Sender: FDA-Public Use
  Company Number: FK201304124

PATIENT
  Age: 30 Year
  Sex: Male

DRUGS (2)
  1. VALPROATE (MANUFACTURER UNKINOWN) (VALOPRATE SODIUM) (VALOPRATE S0DIUM) [Suspect]
     Indication: EPILEPSY
  2. ZONISAMIDE (ZONISAMIDE) UNKNOWN [Suspect]
     Indication: EPILEPSY

REACTIONS (2)
  - Calculus urinary [None]
  - Calculus urinary [None]
